FAERS Safety Report 4882773-7 (Version None)
Quarter: 2006Q1

REPORT INFORMATION
  Report Type: 
  Country: None (occurrence: None)
  Receive Date: 20060117
  Receipt Date: 20050426
  Transmission Date: 20060701
  Serious: Yes (Hospitalization)
  Sender: FDA-Public Use
  Company Number: US-MERCK-0504USA04867

PATIENT
  Age: 71 Year
  Sex: Male
  Weight: 68 kg

DRUGS (2)
  1. VIOXX [Suspect]
     Indication: ARTHRITIS
     Route: 048
     Dates: start: 20000306, end: 20000605
  2. VIOXX [Suspect]
     Route: 048
     Dates: end: 20010101

REACTIONS (15)
  - ANGINA UNSTABLE [None]
  - ARTERIAL STENOSIS LIMB [None]
  - ARTERIAL THROMBOSIS [None]
  - ARTERIOSCLEROSIS [None]
  - CHEST X-RAY ABNORMAL [None]
  - CHOLELITHIASIS [None]
  - CORONARY ARTERY DISEASE [None]
  - DIVERTICULUM [None]
  - HYPERLIPIDAEMIA [None]
  - HYPOTENSION [None]
  - MYOCARDIAL INFARCTION [None]
  - NAUSEA [None]
  - STOMACH DISCOMFORT [None]
  - VENTRICULAR ARRHYTHMIA [None]
  - VOMITING [None]
